FAERS Safety Report 4955191-0 (Version None)
Quarter: 2006Q1

REPORT INFORMATION
  Report Type: 
  Country: None (occurrence: None)
  Receive Date: 20060328
  Receipt Date: 20060316
  Transmission Date: 20060701
  Serious: Yes (Other)
  Sender: FDA-Public Use
  Company Number: US-JNJFOC-20060304253

PATIENT
  Sex: Female

DRUGS (4)
  1. INFLIXIMAB [Suspect]
     Indication: RHEUMATOID ARTHRITIS
     Route: 042
  2. METHOTREXATE [Concomitant]
  3. TYLENOL [Concomitant]
     Dosage: 500 MG, 2 IN 1 DAY, AS NEEDED
  4. FOLIC ACID [Concomitant]

REACTIONS (1)
  - BASAL CELL CARCINOMA [None]
